FAERS Safety Report 19661802 (Version 1)
Quarter: 2021Q3

REPORT INFORMATION
  Report Type: Spontaneous
  Country: US (occurrence: US)
  Receive Date: 20210805
  Receipt Date: 20210805
  Transmission Date: 20211014
  Serious: Yes (Congenital Anomaly)
  Sender: FDA-Public Use
  Company Number: US-PFIZER INC-6740

PATIENT
  Sex: Male

DRUGS (2)
  1. MISOPROSTOL. [Suspect]
     Active Substance: MISOPROSTOL
     Indication: ABORTION INDUCED
     Dosage: 800 UG, SINGLE (ONCE)
     Route: 064
  2. METHOTREXATE SODIUM. [Suspect]
     Active Substance: METHOTREXATE SODIUM
     Indication: ABORTION INDUCED
     Dosage: 50 MG/M2, FREQ: ONCE
     Route: 064

REACTIONS (18)
  - Maternal exposure during pregnancy [Not Recovered/Not Resolved]
  - Limb reduction defect [Not Recovered/Not Resolved]
  - Clinodactyly [Not Recovered/Not Resolved]
  - Multiple congenital abnormalities [Not Recovered/Not Resolved]
  - Cleft lip and palate [Not Recovered/Not Resolved]
  - Cryptorchism [Not Recovered/Not Resolved]
  - Syndactyly [Not Recovered/Not Resolved]
  - Congenital hand malformation [Not Recovered/Not Resolved]
  - Craniosynostosis [Not Recovered/Not Resolved]
  - Anomaly of external ear congenital [Not Recovered/Not Resolved]
  - Congenital nail disorder [Not Recovered/Not Resolved]
  - Fallot^s tetralogy [Not Recovered/Not Resolved]
  - Pterygium [Not Recovered/Not Resolved]
  - Growth retardation [Not Recovered/Not Resolved]
  - Delayed fontanelle closure [Not Recovered/Not Resolved]
  - Heart disease congenital [Not Recovered/Not Resolved]
  - Talipes [Not Recovered/Not Resolved]
  - Genital disorder [Not Recovered/Not Resolved]
